FAERS Safety Report 17043649 (Version 1)
Quarter: 2019Q4

REPORT INFORMATION
  Report Type: Spontaneous
  Country: US (occurrence: US)
  Receive Date: 20191017
  Receipt Date: 20191017
  Transmission Date: 20200122
  Serious: No
  Sender: FDA-Public Use
  Company Number: None

PATIENT
  Age: 32 Year
  Sex: Female
  Weight: 66.22 kg

DRUGS (1)
  1. SUBOXONE [Suspect]
     Active Substance: BUPRENORPHINE HYDROCHLORIDE\NALOXONE HYDROCHLORIDE
     Indication: DRUG DEPENDENCE
     Dosage: ?          OTHER DOSE:1 FILM;?TREATMENT START DATE: 23-SEP-2019?TREATMENT STOP DATE: 21-OCT-2019?
     Route: 060
     Dates: start: 20190923

REACTIONS (2)
  - Product dose omission [None]
  - Product communication issue [None]

NARRATIVE: CASE EVENT DATE: 20191008
